FAERS Safety Report 20379246 (Version 1)
Quarter: 2022Q1

REPORT INFORMATION
  Report Type: Spontaneous
  Country: US (occurrence: None)
  Receive Date: 20220126
  Receipt Date: 20220126
  Transmission Date: 20220423
  Serious: Yes (Other)
  Sender: FDA-Public Use
  Company Number: None

PATIENT
  Age: 59 Year
  Sex: Female
  Weight: 114.75 kg

DRUGS (1)
  1. BAMLANIVIMAB\ETESEVIMAB [Suspect]
     Active Substance: BAMLANIVIMAB\ETESEVIMAB
     Indication: COVID-19
     Dosage: OTHER QUANTITY : 1 INFUSION;?OTHER FREQUENCY : ONE TIME IV INFUSI;?
     Route: 042
     Dates: start: 20220114, end: 20220114

REACTIONS (2)
  - Condition aggravated [None]
  - Illness [None]

NARRATIVE: CASE EVENT DATE: 20220114
